FAERS Safety Report 8341654 (Version 8)
Quarter: 2013Q4

REPORT INFORMATION
  Report Type: Spontaneous
  Country: US (occurrence: US)
  Receive Date: 20111202
  Receipt Date: 20131108
  Transmission Date: 20140711
  Serious: Yes (Hospitalization, Other)
  Sender: FDA-Public Use
  Company Number: US-009507513-2011SP031788

PATIENT
  Age: 33 Year
  Sex: Female
  Weight: 137.89 kg

DRUGS (7)
  1. NUVARING [Suspect]
     Indication: CONTRACEPTION
     Dates: start: 200906, end: 20091211
  2. NUVARING [Suspect]
     Indication: MENSTRUAL CYCLE MANAGEMENT
     Dates: start: 200906, end: 20091211
  3. COUMADIN [Suspect]
     Indication: ANTICOAGULANT THERAPY
     Dates: start: 200912, end: 201003
  4. VITAMINS (UNSPECIFIED) [Concomitant]
     Indication: NUTRITIONAL SUPPLEMENTATION
     Dates: start: 20091101, end: 20091211
  5. VITAMIN B COMPLEX [Concomitant]
     Indication: NUTRITIONAL SUPPLEMENTATION
     Dates: start: 20091101, end: 20091211
  6. HOODIA GORDONII [Concomitant]
     Indication: PRODUCT USED FOR UNKNOWN INDICATION
     Dates: start: 20091101, end: 20091211
  7. HYDROCHLOROTHIAZIDE [Concomitant]
     Indication: HYPERTENSION
     Dates: start: 200901

REACTIONS (13)
  - Drug resistance [Recovering/Resolving]
  - Pulmonary embolism [Unknown]
  - Hypercoagulation [Unknown]
  - Bronchitis [Unknown]
  - Angina pectoris [Unknown]
  - Metabolic syndrome [Unknown]
  - Cardiomegaly [Unknown]
  - International normalised ratio increased [Recovered/Resolved]
  - Depression [Not Recovered/Not Resolved]
  - Otitis media acute [Unknown]
  - Pharyngitis [Unknown]
  - Acute sinusitis [Unknown]
  - Cough [Unknown]
